FAERS Safety Report 10300009 (Version 1)
Quarter: 2014Q3

REPORT INFORMATION
  Report Type: Spontaneous
  Country: JP (occurrence: JP)
  Receive Date: 20140711
  Receipt Date: 20140711
  Transmission Date: 20150326
  Serious: Yes (Death)
  Sender: FDA-Public Use
  Company Number: PHHY2011JP120336

PATIENT
  Sex: Male

DRUGS (1)
  1. SANDOSTATIN LAR DEPOT [Suspect]
     Active Substance: OCTREOTIDE ACETATE
     Indication: NEUROENDOCRINE TUMOUR
     Dosage: 20 MG, DAILY
     Dates: start: 201005

REACTIONS (4)
  - Gastric disorder [Unknown]
  - General physical health deterioration [Unknown]
  - Hormone level abnormal [Unknown]
  - Death [Fatal]

NARRATIVE: CASE EVENT DATE: 201105
